FAERS Safety Report 7219517-X (Version None)
Quarter: 2011Q1

REPORT INFORMATION
  Report Type: 
  Country: None (occurrence: None)
  Receive Date: 20110111
  Receipt Date: 20110106
  Transmission Date: 20110831
  Serious: Yes (Death)
  Sender: FDA-Public Use
  Company Number: US-JNJFOC-20110101570

PATIENT
  Age: 51 Year
  Sex: Female

DRUGS (6)
  1. CYCLOBENZAPRINE HCL [Suspect]
     Indication: SUICIDE ATTEMPT
     Route: 048
  2. OXYCODONE [Suspect]
     Indication: SUICIDE ATTEMPT
  3. PROPRANOLOL [Suspect]
     Indication: SUICIDE ATTEMPT
  4. TEMAZEPAM [Suspect]
     Indication: SUICIDE ATTEMPT
  5. FUROSEMIDE [Suspect]
     Indication: SUICIDE ATTEMPT
  6. ACETAMINOPHEN/BUTALBITAL/CAFFEINE [Suspect]
     Indication: SUICIDE ATTEMPT

REACTIONS (1)
  - COMPLETED SUICIDE [None]
